FAERS Safety Report 6678705-1 (Version None)
Quarter: 2010Q2

REPORT INFORMATION
  Report Type: 
  Country: None (occurrence: None)
  Receive Date: 20100413
  Receipt Date: 20100331
  Transmission Date: 20101027
  Serious: Yes (Other)
  Sender: FDA-Public Use
  Company Number: PHHY2010US20490

PATIENT
  Sex: Male

DRUGS (1)
  1. GENTEAL (NVO) [Suspect]
     Dosage: UNK

REACTIONS (4)
  - FALL [None]
  - HAND FRACTURE [None]
  - SURGERY [None]
  - UPPER LIMB FRACTURE [None]
